FAERS Safety Report 13350176 (Version 1)
Quarter: 2017Q1

REPORT INFORMATION
  Report Type: Spontaneous
  Country: US (occurrence: US)
  Receive Date: 20170320
  Receipt Date: 20170320
  Transmission Date: 20170429
  Serious: Yes (Other)
  Sender: FDA-Public Use
  Company Number: US-ELI_LILLY_AND_COMPANY-US201703006146

PATIENT
  Age: 58 Year
  Sex: Female

DRUGS (6)
  1. VICTOZA [Concomitant]
     Active Substance: LIRAGLUTIDE
     Indication: TYPE 2 DIABETES MELLITUS
  2. LISINOPRIL. [Concomitant]
     Active Substance: LISINOPRIL
  3. PREDNISOLONE. [Suspect]
     Active Substance: PREDNISOLONE
     Indication: CATARACT
     Dosage: UNK, UNKNOWN
     Route: 065
     Dates: start: 201702
  4. HUMALOG [Suspect]
     Active Substance: INSULIN LISPRO
     Indication: TYPE 2 DIABETES MELLITUS
     Dosage: 20 U, TID
     Route: 058
     Dates: start: 2002
  5. INVIRASE [Concomitant]
     Active Substance: SAQUINAVIR MESYLATE
  6. CRESTOR [Concomitant]
     Active Substance: ROSUVASTATIN CALCIUM

REACTIONS (4)
  - Cataract [Recovered/Resolved]
  - Retinal detachment [Unknown]
  - Headache [Unknown]
  - Eye burns [Unknown]

NARRATIVE: CASE EVENT DATE: 201702
